FAERS Safety Report 9949473 (Version 2)
Quarter: 2014Q1

REPORT INFORMATION
  Report Type: Spontaneous
  Country: PR (occurrence: PR)
  Receive Date: 20140304
  Receipt Date: 20140304
  Transmission Date: 20141002
  Serious: Yes (Other)
  Sender: FDA-Public Use
  Company Number: PR-ABBVIE-13P-131-1045229-00

PATIENT
  Sex: Female
  Weight: 70.82 kg

DRUGS (6)
  1. HUMIRA [Suspect]
     Indication: RHEUMATOID ARTHRITIS
     Route: 058
     Dates: start: 201112, end: 20130127
  2. LOSARTAN [Concomitant]
     Indication: HYPERTENSION
     Route: 048
     Dates: start: 201301
  3. METHOTREXATE [Concomitant]
     Indication: RHEUMATOID ARTHRITIS
     Dosage: 3 TABLETS ON TUESDAY
     Route: 048
     Dates: start: 2009
  4. BONIVA [Concomitant]
     Indication: OSTEOARTHRITIS
     Route: 048
     Dates: start: 201212
  5. CALCIUM [Concomitant]
     Indication: OSTEOARTHRITIS
     Route: 048
  6. ZOLPIDEM [Concomitant]
     Indication: SLEEP DISORDER THERAPY
     Dosage: AT BEDTIME
     Route: 048

REACTIONS (2)
  - Abscess [Recovered/Resolved]
  - Cataract [Recovered/Resolved]
